FAERS Safety Report 11840227 (Version 1)
Quarter: 2015Q4

REPORT INFORMATION
  Report Type: Spontaneous
  Country: US (occurrence: None)
  Receive Date: 20151215
  Receipt Date: 20151215
  Transmission Date: 20160305
  Serious: Yes (Hospitalization)
  Sender: FDA-Public Use
  Company Number: None

PATIENT
  Age: 44 Year
  Sex: Male
  Weight: 103.55 kg

DRUGS (1)
  1. ERBITUX [Suspect]
     Active Substance: CETUXIMAB
     Dates: end: 20151123

REACTIONS (5)
  - Pruritus [None]
  - Pain [None]
  - Paraesthesia [None]
  - Rash [None]
  - Erythema [None]

NARRATIVE: CASE EVENT DATE: 20151201
